FAERS Safety Report 7496543-7 (Version None)
Quarter: 2011Q2

REPORT INFORMATION
  Report Type: 
  Country: None (occurrence: None)
  Receive Date: 20110520
  Receipt Date: 20110520
  Transmission Date: 20111010
  Serious: Yes (Death, Life-Threatening, Hospitalization)
  Sender: FDA-Public Use
  Company Number: None

PATIENT
  Sex: Male

DRUGS (1)
  1. BEVACIZUMAB GENENTECH [Suspect]
     Indication: NON-SMALL CELL LUNG CANCER
     Dosage: 1840MG EVERY 3WKS INTRAVENOUS
     Route: 042
     Dates: start: 20091127, end: 20100610

REACTIONS (9)
  - LEUKOCYTOSIS [None]
  - ACUTE RESPIRATORY FAILURE [None]
  - MALIGNANT PLEURAL EFFUSION [None]
  - CHILLS [None]
  - PYREXIA [None]
  - PULMONARY TOXICITY [None]
  - DECREASED APPETITE [None]
  - PULMONARY FIBROSIS [None]
  - FALL [None]
